FAERS Safety Report 23131397 (Version 2)
Quarter: 2024Q1

REPORT INFORMATION
  Report Type: Report from Study
  Country: US (occurrence: US)
  Receive Date: 20231031
  Receipt Date: 20240215
  Transmission Date: 20240409
  Serious: Yes (Other)
  Sender: FDA-Public Use
  Company Number: US-JAZZ PHARMACEUTICALS-2021-US-018183

PATIENT
  Age: 31 Year
  Sex: Female

DRUGS (26)
  1. XYWAV [Suspect]
     Active Substance: CALCIUM OXYBATE\MAGNESIUM OXYBATE\POTASSIUM OXYBATE\SODIUM OXYBATE
     Indication: Narcolepsy
     Dosage: 4.5 GRAM, BID
     Route: 048
     Dates: start: 202012, end: 202109
  2. XYWAV [Suspect]
     Active Substance: CALCIUM OXYBATE\MAGNESIUM OXYBATE\POTASSIUM OXYBATE\SODIUM OXYBATE
     Indication: Hypersomnia
     Dosage: 3.5 GRAM, BID
     Route: 048
     Dates: start: 202109
  3. XYWAV [Suspect]
     Active Substance: CALCIUM OXYBATE\MAGNESIUM OXYBATE\POTASSIUM OXYBATE\SODIUM OXYBATE
     Dosage: 3.75 GRAMS FIRST DOSE AND 2.5 GRAMS SECOND DOSE
  4. COVID-19 VACCINE NOS [Suspect]
     Active Substance: COVID-19 VACCINE NOS
     Indication: Product used for unknown indication
  5. VITAMIN D3 [Concomitant]
     Active Substance: CHOLECALCIFEROL
     Dosage: UNK
     Dates: start: 20210724
  6. BETAMETHASONE [Concomitant]
     Active Substance: BETAMETHASONE\BETAMETHASONE DIPROPIONATE
     Dosage: UNK
     Dates: start: 20200909
  7. CLOBETASOL [Concomitant]
     Active Substance: CLOBETASOL
     Dosage: UNK
     Dates: start: 20201105
  8. MEDROXYPROGESTERONE [Concomitant]
     Active Substance: MEDROXYPROGESTERONE
     Dosage: UNK
     Dates: start: 20211031
  9. FLECAINIDE ACETATE [Concomitant]
     Active Substance: FLECAINIDE ACETATE
     Dosage: UNK
     Dates: start: 20210925
  10. AZELAIC ACID [Concomitant]
     Active Substance: AZELAIC ACID
     Dosage: UNK
     Dates: start: 20210925
  11. AUGMENTIN [Concomitant]
     Active Substance: AMOXICILLIN\CLAVULANATE POTASSIUM
     Dosage: UNK
     Dates: start: 20220601
  12. TRIAMCINOLONE [Concomitant]
     Active Substance: TRIAMCINOLONE
     Dosage: UNK
     Dates: start: 20220601
  13. AZELASTINE [Concomitant]
     Active Substance: AZELASTINE\AZELASTINE HYDROCHLORIDE
     Dosage: UNK
     Dates: start: 20211019
  14. FLONASE ALLERGY RELIEF [Concomitant]
     Active Substance: FLUTICASONE PROPIONATE
     Dosage: UNK
     Dates: start: 20211019
  15. TURMERIC [Concomitant]
     Active Substance: TURMERIC
     Dosage: 1 ORAL CAPSULE ONCE A DAY
  16. FISH OIL [Concomitant]
     Active Substance: FISH OIL
     Dosage: 1 ORAL CAPSULE ONCE A DAY
     Dates: start: 20211022
  17. PROGESTERONE [Concomitant]
     Active Substance: PROGESTERONE
     Dosage: 10 MILLIGRAM, QD
     Dates: start: 20211022
  18. INOSITOL [Concomitant]
     Active Substance: INOSITOL
     Dosage: 1 ORAL PACKET 2 TIMES A DAY
     Dates: start: 20220215
  19. VENLAFAXINE [Concomitant]
     Active Substance: VENLAFAXINE HYDROCHLORIDE
     Dosage: 1 ORAL CAPSULE ONCE A DAY
     Dates: start: 20220215
  20. ZINC GLUCONATE [Concomitant]
     Active Substance: ZINC GLUCONATE
     Dosage: 1 ORAL TABLET EVERY MORNINGS
     Dates: start: 20230626
  21. ADDERALL [Concomitant]
     Active Substance: AMPHETAMINE ASPARTATE\AMPHETAMINE SULFATE\DEXTROAMPHETAMINE SACCHARATE\DEXTROAMPHETAMINE SULFATE
     Dosage: UNK
     Dates: start: 20231009
  22. TOPIRAMATE [Concomitant]
     Active Substance: TOPIRAMATE
     Dosage: 2 ORAL TABLETS 2 TIMES A DAY
     Dates: start: 20231009
  23. OMEPRAZOLE [Concomitant]
     Active Substance: OMEPRAZOLE
     Indication: Gastrooesophageal reflux disease
     Dosage: UNK
     Dates: start: 20231004
  24. ALBUTEROL SULFATE [Concomitant]
     Active Substance: ALBUTEROL SULFATE
     Indication: Product used for unknown indication
     Dosage: UNK
     Dates: start: 20230904
  25. VALACYCLOVIR HYDROCHLORIDE [Concomitant]
     Active Substance: VALACYCLOVIR HYDROCHLORIDE
     Indication: Product used for unknown indication
     Dosage: UNK
     Dates: start: 20211025
  26. TOPAMAX [Concomitant]
     Active Substance: TOPIRAMATE
     Indication: Headache

REACTIONS (8)
  - Drug dependence [Unknown]
  - Idiopathic intracranial hypertension [Unknown]
  - Polycystic ovarian syndrome [Unknown]
  - Weight increased [Unknown]
  - Costochondritis [Recovered/Resolved]
  - Enuresis [Unknown]
  - Ventricular extrasystoles [Unknown]
  - Product dose omission issue [Unknown]

NARRATIVE: CASE EVENT DATE: 20210901
